FAERS Safety Report 19742822 (Version 1)
Quarter: 2021Q3

REPORT INFORMATION
  Report Type: Spontaneous
  Country: US (occurrence: US)
  Receive Date: 20210824
  Receipt Date: 20210824
  Transmission Date: 20211014
  Serious: No
  Sender: FDA-Public Use
  Company Number: US-ASTRAZENECA-2021A691308

PATIENT
  Sex: Female
  Weight: 117.9 kg

DRUGS (1)
  1. PULMICORT FLEXHALER [Suspect]
     Active Substance: BUDESONIDE
     Indication: ASTHMA
     Route: 055
     Dates: start: 20210808

REACTIONS (3)
  - Dyspnoea [Unknown]
  - Paranasal sinus mass [Unknown]
  - Nasal congestion [Unknown]
